FAERS Safety Report 7085070-7 (Version None)
Quarter: 2010Q4

REPORT INFORMATION
  Report Type: 
  Country: None (occurrence: None)
  Receive Date: 20101105
  Receipt Date: 20101025
  Transmission Date: 20110411
  Serious: Yes (Hospitalization)
  Sender: FDA-Public Use
  Company Number: FR-BAYER-201039737GPV

PATIENT
  Age: 68 Year
  Sex: Male
  Weight: 106 kg

DRUGS (12)
  1. SORAFENIB [Suspect]
     Indication: HEPATIC NEOPLASM MALIGNANT
     Dosage: UNIT DOSE: 200 MG
     Route: 048
     Dates: start: 20091021, end: 20091222
  2. SORAFENIB [Suspect]
     Dosage: UNIT DOSE: 200 MG
     Route: 048
     Dates: start: 20091229, end: 20100111
  3. SORAFENIB [Suspect]
     Dosage: UNIT DOSE: 200 MG
     Route: 048
     Dates: start: 20100112, end: 20100125
  4. SORAFENIB [Suspect]
     Dosage: UNIT DOSE: 200 MG
     Route: 048
     Dates: start: 20100214, end: 20100322
  5. AVLOCARDYL [Concomitant]
     Route: 048
     Dates: start: 20091021
  6. NEXIUM [Concomitant]
     Dates: start: 20080730
  7. TRIATEC [Concomitant]
     Dates: start: 20050801
  8. IMODIUM [Concomitant]
     Route: 048
     Dates: start: 20091101, end: 20100806
  9. SMECTA [Concomitant]
     Dosage: 4 BAGS
     Dates: start: 20091130, end: 20100501
  10. DEXERYL [Concomitant]
     Dosage: 2 APPLICATIONS
     Dates: start: 20100112
  11. ARIXTRA [Concomitant]
     Dates: start: 20100112, end: 20100215
  12. DUPHALAC [Concomitant]
     Dates: start: 20100125, end: 20100201

REACTIONS (1)
  - GENERALISED OEDEMA [None]
